FAERS Safety Report 10509986 (Version 1)
Quarter: 2014Q4

REPORT INFORMATION
  Report Type: Spontaneous
  Country: US (occurrence: None)
  Receive Date: 20141008
  Receipt Date: 20141008
  Transmission Date: 20150528
  Serious: Yes (Death, Hospitalization)
  Sender: FDA-Public Use
  Company Number: CPI 6409

PATIENT
  Age: 36 Year
  Sex: Female

DRUGS (5)
  1. VASOPRESSORS [Concomitant]
     Active Substance: UNSPECIFIED INGREDIENT
  2. ANTICONVULSANTS [Suspect]
     Active Substance: UNSPECIFIED INGREDIENT
     Indication: DYSKINESIA
  3. LACTULOSE. [Suspect]
     Active Substance: LACTULOSE
  4. PROPOFOL. [Concomitant]
     Active Substance: PROPOFOL
  5. ANTIBIOTICS (UNNAMED) [Concomitant]

REACTIONS (8)
  - Hypertension [None]
  - Multi-organ failure [None]
  - Hypotension [None]
  - Hyperammonaemia [None]
  - Brain oedema [None]
  - Tachycardia [None]
  - Haemodialysis [None]
  - Brain herniation [None]
